FAERS Safety Report 19981723 (Version 2)
Quarter: 2021Q4

REPORT INFORMATION
  Report Type: Spontaneous
  Country: IN (occurrence: IN)
  Receive Date: 20211022
  Receipt Date: 20211022
  Transmission Date: 20220303
  Serious: Yes (Other)
  Sender: FDA-Public Use
  Company Number: IN-MLMSERVICE-20211005-3136002-1

PATIENT

DRUGS (5)
  1. ETOPOSIDE [Suspect]
     Active Substance: ETOPOSIDE
     Indication: Rhabdoid tumour
     Dosage: 600 MILLIGRAM/SQ. METER, 2 CYCLICAL (D1-D3, REPEATED EVERY 3 WEEKS)
     Route: 042
  2. CARBOPLATIN [Suspect]
     Active Substance: CARBOPLATIN
     Indication: Rhabdoid tumour
     Dosage: 1000 MILLIGRAM/SQ. METER, 2 CYCLICAL (D3, REPEATED EVERY 3 WEEKS)
     Route: 042
  3. IFOSFAMIDE [Suspect]
     Active Substance: IFOSFAMIDE
     Indication: Rhabdoid tumour
     Dosage: 2 G/M2, 2 CYCLICAL (D1-D3, REPEATED EVERY 3 WEEKS)
     Route: 042
  4. MESNA [Concomitant]
     Active Substance: MESNA
     Indication: Prophylaxis
     Dosage: UNK
     Route: 065
  5. GRANULOCYTE COLONY-STIMULATING FACTOR NOS [Concomitant]
     Active Substance: GRANULOCYTE COLONY-STIMULATING FACTOR NOS
     Indication: Prophylaxis
     Dosage: 5 MILLIGRAM/KILOGRAM, SUBCUTANEOUS D4-D8, REPEATED EVERY 3 WEEKS
     Route: 058

REACTIONS (6)
  - Gangrene [Unknown]
  - Ulcer [Unknown]
  - Neutropenia [Unknown]
  - Thrombocytopenia [Unknown]
  - Leukopenia [Unknown]
  - Anaemia [Unknown]
